FAERS Safety Report 6691428-8 (Version None)
Quarter: 2010Q2

REPORT INFORMATION
  Report Type: 
  Country: None (occurrence: None)
  Receive Date: 20100414
  Receipt Date: 20090728
  Transmission Date: 20101027
  Serious: Yes (Other)
  Sender: FDA-Public Use
  Company Number: 09-335

PATIENT
  Age: 67 Year
  Sex: Male

DRUGS (5)
  1. ALEVE [Suspect]
     Indication: BACK PAIN
     Dosage: 440 MG, DAILY, ORAL, 440 MG, DAILY, ORAL
     Route: 048
     Dates: start: 20090721, end: 20090721
  2. QUINAPRIL [Concomitant]
  3. ATENOLOL [Concomitant]
  4. DOXAZOSIN MESYLATE [Concomitant]
  5. OAD HEALTH FORMULA VITAMIN [Concomitant]

REACTIONS (1)
  - HAEMATOCHEZIA [None]
